FAERS Safety Report 8587270-3 (Version None)
Quarter: 2012Q3

REPORT INFORMATION
  Report Type: 
  Country: None (occurrence: None)
  Receive Date: 20120810
  Receipt Date: 20110907
  Transmission Date: 20120928
  Serious: No
  Sender: FDA-Public Use
  Company Number: US-ASTRAZENECA-2011SE53728

PATIENT
  Age: 59 Year
  Sex: Female
  Weight: 65.8 kg

DRUGS (3)
  1. SYNTHROID [Concomitant]
     Indication: BASEDOW'S DISEASE
  2. ARIMIDEX [Suspect]
     Indication: BREAST CANCER
     Route: 048
     Dates: start: 20080201, end: 20110814
  3. FEMARA [Concomitant]
     Indication: BREAST CANCER

REACTIONS (2)
  - PAIN IN EXTREMITY [None]
  - GROIN PAIN [None]
